FAERS Safety Report 19741298 (Version 3)
Quarter: 2021Q4

REPORT INFORMATION
  Report Type: Spontaneous
  Country: US (occurrence: US)
  Receive Date: 20210824
  Receipt Date: 20211230
  Transmission Date: 20220303
  Serious: No
  Sender: FDA-Public Use
  Company Number: US-PFIZER INC-2021329172

PATIENT
  Age: 63 Year
  Sex: Female

DRUGS (2)
  1. XELJANZ XR [Suspect]
     Active Substance: TOFACITINIB CITRATE
     Indication: Colitis ulcerative
     Dosage: 11 MG, DAILY
     Route: 048
     Dates: start: 20210319
  2. XELJANZ XR [Suspect]
     Active Substance: TOFACITINIB CITRATE
     Indication: Crohn^s disease
     Dosage: 11 MG, 2X/DAY
     Route: 048
     Dates: start: 20210319

REACTIONS (5)
  - Off label use [Unknown]
  - Acne [Recovering/Resolving]
  - Abnormal faeces [Recovering/Resolving]
  - Sleep disorder [Unknown]
  - Blood triglycerides increased [Not Recovered/Not Resolved]
